FAERS Safety Report 10183655 (Version 3)
Quarter: 2014Q3

REPORT INFORMATION
  Report Type: Spontaneous
  Country: US (occurrence: US)
  Receive Date: 20140520
  Receipt Date: 20140701
  Transmission Date: 20150326
  Serious: No
  Sender: FDA-Public Use
  Company Number: US-GILEAD-2014-0102978

PATIENT
  Sex: Female

DRUGS (4)
  1. ADCIRCA [Concomitant]
     Active Substance: TADALAFIL
  2. LETAIRIS [Suspect]
     Active Substance: AMBRISENTAN
     Indication: PRODUCT USED FOR UNKNOWN INDICATION
     Dosage: 10 MG, QD
     Route: 065
     Dates: start: 20130415
  3. TYVASO [Concomitant]
     Active Substance: TREPROSTINIL
  4. CELEBREX [Concomitant]
     Active Substance: CELECOXIB

REACTIONS (2)
  - Platelet count decreased [Unknown]
  - Seasonal allergy [Not Recovered/Not Resolved]
